FAERS Safety Report 4289977-5 (Version None)
Quarter: 2004Q1

REPORT INFORMATION
  Report Type: 
  Country: None (occurrence: None)
  Receive Date: 20040209
  Receipt Date: 20030812
  Transmission Date: 20041129
  Serious: Yes (Hospitalization, Other)
  Sender: FDA-Public Use
  Company Number: USA030742237

PATIENT
  Age: 73 Year
  Sex: Female
  Weight: 39 kg

DRUGS (1)
  1. EVISTA [Suspect]
     Dosage: 60MG
     Dates: start: 20021007, end: 20030701

REACTIONS (1)
  - DEEP VEIN THROMBOSIS [None]
